FAERS Safety Report 5795105-7 (Version None)
Quarter: 2008Q2

REPORT INFORMATION
  Report Type: 
  Country: None (occurrence: None)
  Receive Date: 20080630
  Receipt Date: 20080410
  Transmission Date: 20081010
  Serious: No
  Sender: FDA-Public Use
  Company Number: US-BRISTOL-MYERS SQUIBB COMPANY-14146948

PATIENT

DRUGS (1)
  1. ORENCIA [Suspect]

REACTIONS (1)
  - NEUROPATHY PERIPHERAL [None]
